FAERS Safety Report 5321086-6 (Version None)
Quarter: 2007Q2

REPORT INFORMATION
  Report Type: 
  Country: None (occurrence: None)
  Receive Date: 20070504
  Receipt Date: 20070426
  Transmission Date: 20071010
  Serious: Yes (Other)
  Sender: FDA-Public Use
  Company Number: TAP2007Q00557

PATIENT
  Age: 30 Year
  Sex: Female
  Weight: 58.18 kg

DRUGS (10)
  1. LUPRON DEPOT [Suspect]
     Indication: ENDOMETRIOSIS
     Dosage: 3.75 MG, ONCE, INTRAMUSCULAR
     Route: 030
     Dates: start: 20070420
  2. VICODIN [Concomitant]
  3. ZANTAC [Concomitant]
  4. PRILOSEC [Concomitant]
  5. DEPAKOTE [Concomitant]
  6. IMITREX [Concomitant]
  7. ALLEGRA [Concomitant]
  8. KLONOPIN [Concomitant]
  9. PHENERGAN (PROMETHIAZINE) [Concomitant]
  10. TESTOSTERONE CREAM (TESTOSTERONE) [Concomitant]

REACTIONS (6)
  - BLINDNESS TRANSIENT [None]
  - BONE PAIN [None]
  - DRUG INEFFECTIVE [None]
  - HEADACHE [None]
  - MIGRAINE WITH AURA [None]
  - PAIN IN EXTREMITY [None]
